FAERS Safety Report 23508667 (Version 1)
Quarter: 2024Q1

REPORT INFORMATION
  Report Type: Spontaneous
  Country: FR (occurrence: FR)
  Receive Date: 20240209
  Receipt Date: 20240209
  Transmission Date: 20240410
  Serious: Yes (Hospitalization, Other)
  Sender: FDA-Public Use
  Company Number: None

PATIENT
  Age: 24 Year
  Sex: Male

DRUGS (5)
  1. TRAMADOL [Suspect]
     Active Substance: TRAMADOL\TRAMADOL HYDROCHLORIDE
     Route: 048
     Dates: start: 20231107, end: 20231108
  2. XANAX [Suspect]
     Active Substance: ALPRAZOLAM
     Route: 048
     Dates: start: 20231107, end: 20231108
  3. OXYCODONE [Suspect]
     Active Substance: OXYCODONE\OXYCODONE HYDROCHLORIDE
     Dosage: 40 MG ON 07 AND 08/11/202 = DOSES HIGHER THAN USUAL,OXYCODONE (CHLORHYDRATE D^)
     Route: 045
     Dates: start: 2023
  4. PHENERGAN [Suspect]
     Active Substance: PROMETHAZINE HYDROCHLORIDE
     Route: 048
     Dates: start: 20231107, end: 20231108
  5. MORPHINE [Suspect]
     Active Substance: MORPHINE
     Route: 048
     Dates: start: 20231107, end: 20231108

REACTIONS (2)
  - Radial nerve compression [Recovering/Resolving]
  - Drug use disorder [Unknown]

NARRATIVE: CASE EVENT DATE: 20230101
